FAERS Safety Report 10932603 (Version 1)
Quarter: 2015Q1

REPORT INFORMATION
  Report Type: Spontaneous
  Country: US (occurrence: None)
  Receive Date: 20150319
  Receipt Date: 20150319
  Transmission Date: 20150721
  Serious: Yes (Hospitalization)
  Sender: FDA-Public Use
  Company Number: None

PATIENT
  Age: 65 Year
  Sex: Male
  Weight: 77.6 kg

DRUGS (1)
  1. WARFARIN [Suspect]
     Active Substance: WARFARIN
     Indication: DEEP VEIN THROMBOSIS
     Dosage: MG
     Route: 048
     Dates: start: 20120903, end: 20150312

REACTIONS (9)
  - Rectal haemorrhage [None]
  - Post procedural haemorrhage [None]
  - International normalised ratio increased [None]
  - Asthenia [None]
  - Hypotension [None]
  - Dizziness [None]
  - Fall [None]
  - Anaemia [None]
  - Subdural haematoma [None]

NARRATIVE: CASE EVENT DATE: 20150312
